FAERS Safety Report 16333938 (Version 1)
Quarter: 2019Q2

REPORT INFORMATION
  Report Type: Spontaneous
  Country: CA (occurrence: CA)
  Receive Date: 20190520
  Receipt Date: 20190520
  Transmission Date: 20190711
  Serious: Yes (Other)
  Sender: FDA-Public Use
  Company Number: CA-GLAXOSMITHKLINE-CA2019GSK088262

PATIENT
  Age: 80 Year
  Sex: Male

DRUGS (2)
  1. TRELEGY ELLIPTA [Suspect]
     Active Substance: FLUTICASONE FUROATE\UMECLIDINIUM BROMIDE\VILANTEROL TRIFENATATE
     Indication: PRODUCT USED FOR UNKNOWN INDICATION
     Dosage: UNK
  2. ANORO ELLIPTA [Suspect]
     Active Substance: UMECLIDINIUM BROMIDE\VILANTEROL TRIFENATATE
     Indication: PRODUCT USED FOR UNKNOWN INDICATION
     Dosage: UNK

REACTIONS (10)
  - Atrioventricular block [Unknown]
  - Macular degeneration [Unknown]
  - Myocardial infarction [Unknown]
  - Renal mass [Unknown]
  - Dyspnoea [Unknown]
  - Pulmonary fibrosis [Unknown]
  - Cataract [Unknown]
  - Diabetes mellitus [Unknown]
  - Hypertension [Unknown]
  - Pancreatic mass [Unknown]
